FAERS Safety Report 7391172-8 (Version None)
Quarter: 2011Q2

REPORT INFORMATION
  Report Type: 
  Country: None (occurrence: None)
  Receive Date: 20110404
  Receipt Date: 20100408
  Transmission Date: 20111010
  Serious: No
  Sender: FDA-Public Use
  Company Number: US-PFIZER INC-2010030641

PATIENT
  Sex: Male
  Weight: 37 kg

DRUGS (1)
  1. GENOTROPIN [Suspect]
     Dosage: 2 MG, UNK
     Route: 058
     Dates: start: 20090701

REACTIONS (2)
  - INJECTION SITE PRURITUS [None]
  - INJECTION SITE SWELLING [None]
